FAERS Safety Report 19177334 (Version 1)
Quarter: 2021Q2

REPORT INFORMATION
  Report Type: Spontaneous
  Country: US (occurrence: US)
  Receive Date: 20210425
  Receipt Date: 20210425
  Transmission Date: 20210717
  Serious: No
  Sender: FDA-Public Use
  Company Number: US-GLAXOSMITHKLINE-USCH2021AMR020857

PATIENT
  Age: 69 Year
  Sex: Female

DRUGS (3)
  1. TYLENOL [Suspect]
     Active Substance: ACETAMINOPHEN
     Indication: ADVERSE EVENT FOLLOWING IMMUNISATION
     Dosage: UNK
  2. CORTISONE SHOT [Concomitant]
     Active Substance: HYDROCORTISONE
     Indication: MENISCUS INJURY
     Dosage: UNK
  3. ADVIL [Suspect]
     Active Substance: IBUPROFEN
     Indication: ADVERSE EVENT FOLLOWING IMMUNISATION
     Dosage: UNK

REACTIONS (2)
  - Drug ineffective [Unknown]
  - Contraindicated product administered [Unknown]
